FAERS Safety Report 18686912 (Version 2)
Quarter: 2021Q1

REPORT INFORMATION
  Report Type: Report from Study
  Country: IN (occurrence: IN)
  Receive Date: 20201231
  Receipt Date: 20210204
  Transmission Date: 20210419
  Serious: Yes (Death, Other)
  Sender: FDA-Public Use
  Company Number: IN-AMGEN-INDSL2020211423

PATIENT
  Age: 60 Year
  Sex: Male

DRUGS (2)
  1. KYPROLIS [Suspect]
     Active Substance: CARFILZOMIB
     Indication: PLASMA CELL MYELOMA
     Dosage: 60 MILLIGRAM, 2 TIMES/WK (2 VIALS PER WEEK)
     Route: 042
     Dates: start: 20201013
  2. KYPROLIS [Suspect]
     Active Substance: CARFILZOMIB
     Dosage: 120 MILLIGRAM
     Route: 042
     Dates: start: 202010

REACTIONS (1)
  - Multiple organ dysfunction syndrome [Fatal]

NARRATIVE: CASE EVENT DATE: 202010
